FAERS Safety Report 23520842 (Version 1)
Quarter: 2024Q1

REPORT INFORMATION
  Report Type: Spontaneous
  Country: JP (occurrence: JP)
  Receive Date: 20240214
  Receipt Date: 20240214
  Transmission Date: 20240410
  Serious: Yes (Hospitalization, Other)
  Sender: FDA-Public Use
  Company Number: JP-aspen-SDZ2023JP003066AA

PATIENT
  Age: 86 Year
  Sex: Female

DRUGS (1)
  1. VALACYCLOVIR HYDROCHLORIDE [Suspect]
     Active Substance: VALACYCLOVIR HYDROCHLORIDE
     Indication: Herpes zoster
     Dosage: 3000 MG
     Route: 048

REACTIONS (2)
  - Toxic encephalopathy [Recovering/Resolving]
  - Nephropathy toxic [Recovering/Resolving]
